FAERS Safety Report 6255957-3 (Version None)
Quarter: 2009Q3

REPORT INFORMATION
  Report Type: 
  Country: None (occurrence: None)
  Receive Date: 20090706
  Receipt Date: 20090629
  Transmission Date: 20100115
  Serious: Yes (Hospitalization, Other)
  Sender: FDA-Public Use
  Company Number: FR-BRISTOL-MYERS SQUIBB COMPANY-14619191

PATIENT
  Age: 57 Year
  Sex: Female

DRUGS (7)
  1. ORENCIA [Suspect]
     Indication: RHEUMATOID ARTHRITIS
     Dosage: LAST INFUSION ON 13MAY09
     Route: 042
     Dates: start: 20071003
  2. HYDROCORTISONE [Suspect]
     Route: 048
     Dates: start: 20081223, end: 20090512
  3. NOVATREX [Suspect]
     Dosage: NOVATREX 2.5MG 1 D.F=8 TABLETS/WEEK
     Dates: start: 20060614
  4. CORTANCYL [Suspect]
     Dosage: CORTANCYL 1 MG
     Route: 048
  5. SPECIAFOLDINE [Concomitant]
  6. FOSAMAX [Concomitant]
  7. ALUMINUM HYDROXIDE AND MAGNESIUM TRISILICATE [Concomitant]

REACTIONS (3)
  - LUNG DISORDER [None]
  - ORAL FUNGAL INFECTION [None]
  - VULVOVAGINAL MYCOTIC INFECTION [None]
